FAERS Safety Report 5728785-2 (Version None)
Quarter: 2008Q2

REPORT INFORMATION
  Report Type: 
  Country: None (occurrence: None)
  Receive Date: 20080506
  Receipt Date: 20080425
  Transmission Date: 20081010
  Serious: Yes (Hospitalization)
  Sender: FDA-Public Use
  Company Number: US-AMGEN-KDL276603

PATIENT
  Sex: Female

DRUGS (1)
  1. ENBREL [Suspect]
     Indication: RHEUMATOID ARTHRITIS
     Route: 058
     Dates: start: 19990101, end: 20010101

REACTIONS (7)
  - C-REACTIVE PROTEIN INCREASED [None]
  - DRUG EXPOSURE DURING PREGNANCY [None]
  - ECLAMPSIA [None]
  - LABOUR INDUCTION [None]
  - PREGNANCY [None]
  - RHEUMATOID ARTHRITIS [None]
  - WEIGHT INCREASED [None]
